FAERS Safety Report 4787357-7 (Version None)
Quarter: 2005Q4

REPORT INFORMATION
  Report Type: 
  Country: None (occurrence: None)
  Receive Date: 20051003
  Receipt Date: 20050919
  Transmission Date: 20060501
  Serious: Yes (Hospitalization, Other)
  Sender: FDA-Public Use
  Company Number: 2005131133

PATIENT
  Age: 22 Year
  Sex: Male

DRUGS (1)
  1. VFEND [Suspect]
     Indication: PNEUMONIA ASPERGILLUS
     Dosage: 400 MG (200 MG, BID)
     Dates: start: 20050816, end: 20050915

REACTIONS (2)
  - CONGESTIVE CARDIOMYOPATHY [None]
  - MYOCARDITIS [None]
